FAERS Safety Report 18265372 (Version 1)
Quarter: 2020Q3

REPORT INFORMATION
  Report Type: Other
  Country: US (occurrence: US)
  Receive Date: 20200914
  Receipt Date: 20200914
  Transmission Date: 20201103
  Serious: No
  Sender: FDA-Public Use
  Company Number: US-LEADIANT BIOSCIENCES INC-2020STPI000144

PATIENT
  Sex: Male

DRUGS (24)
  1. CYCLOPHOSPHAM [Concomitant]
  2. ALOXI [Concomitant]
     Active Substance: PALONOSETRON HYDROCHLORIDE
  3. COQ10 + D3 [Concomitant]
  4. LASIX + K [Concomitant]
     Active Substance: FUROSEMIDE\POTASSIUM CHLORIDE
  5. ANORO ELLIPTA [Concomitant]
     Active Substance: UMECLIDINIUM BROMIDE\VILANTEROL TRIFENATATE
  6. LOSARTAN. [Concomitant]
     Active Substance: LOSARTAN
  7. MAGNESIUM [Concomitant]
     Active Substance: MAGNESIUM
  8. SPIRONOLACTON [Concomitant]
     Active Substance: SPIRONOLACTONE
  9. SUPER B COMPL [Concomitant]
  10. OMEPRAZOLE. [Concomitant]
     Active Substance: OMEPRAZOLE
  11. MATULANE [Suspect]
     Active Substance: PROCARBAZINE HYDROCHLORIDE
     Indication: LYMPHOMA
     Dosage: 100 MG CAPSULE QD
     Route: 048
     Dates: start: 20191227
  12. ASPIRIN (E.C.) [Concomitant]
     Active Substance: ASPIRIN
  13. METOPROLOL. [Concomitant]
     Active Substance: METOPROLOL
  14. NEULASTA [Concomitant]
     Active Substance: PEGFILGRASTIM
  15. POTASSIUM [Concomitant]
     Active Substance: POTASSIUM
  16. EMEND [Concomitant]
     Active Substance: APREPITANT
  17. ETOPOSIDE. [Concomitant]
     Active Substance: ETOPOSIDE
  18. WELLBUTRIN [Concomitant]
     Active Substance: BUPROPION HYDROCHLORIDE
  19. XANAX [Concomitant]
     Active Substance: ALPRAZOLAM
  20. BENADRYL ALLERGY + COLD [Concomitant]
  21. PREDNISONE. [Concomitant]
     Active Substance: PREDNISONE
  22. TESSALON [Concomitant]
     Active Substance: BENZONATATE
  23. MULTI VIT [Concomitant]
     Active Substance: VITAMINS
  24. TRIPLE FLEX RAPID RELIEF [Concomitant]

REACTIONS (2)
  - Dyspnoea [Not Recovered/Not Resolved]
  - Heart rate increased [Not Recovered/Not Resolved]
